FAERS Safety Report 7928570-7 (Version None)
Quarter: 2011Q4

REPORT INFORMATION
  Report Type: 
  Country: None (occurrence: None)
  Receive Date: 20111118
  Receipt Date: 20100625
  Transmission Date: 20120403
  Serious: No
  Sender: FDA-Public Use
  Company Number: US-BAYER-201026359NA

PATIENT
  Age: 55 Year
  Sex: Male

DRUGS (2)
  1. HUMIRA [Suspect]
     Indication: CROHN'S DISEASE
  2. CIPROFLOXACIN [Suspect]
     Indication: FISTULA
     Dosage: UNK
     Dates: start: 20100401

REACTIONS (2)
  - FISTULA [None]
  - URTICARIA [None]
